FAERS Safety Report 7284872-1 (Version None)
Quarter: 2011Q1

REPORT INFORMATION
  Report Type: 
  Country: None (occurrence: None)
  Receive Date: 20110204
  Receipt Date: 20110204
  Transmission Date: 20110831
  Serious: Yes (Other)
  Sender: FDA-Public Use
  Company Number: None

PATIENT
  Age: 24 Year
  Sex: Female
  Weight: 52.1637 kg

DRUGS (2)
  1. CRYSELLE [Suspect]
     Indication: MENSTRUAL DISORDER
     Dosage: DAILY PO
     Route: 048
     Dates: start: 20101201, end: 20110101
  2. ORAL CONTRACEPTIVE [Concomitant]

REACTIONS (5)
  - RAYNAUD'S PHENOMENON [None]
  - OEDEMA PERIPHERAL [None]
  - BURNING SENSATION [None]
  - PRURITUS [None]
  - CONDITION AGGRAVATED [None]
